FAERS Safety Report 5382430-7 (Version None)
Quarter: 2007Q2

REPORT INFORMATION
  Report Type: 
  Country: None (occurrence: None)
  Receive Date: 20070629
  Receipt Date: 20060718
  Transmission Date: 20071010
  Serious: Yes (Other)
  Sender: FDA-Public Use
  Company Number: VISP-PR-0607S-0463

PATIENT
  Age: 63 Year
  Sex: Male
  Weight: 70.3075 kg

DRUGS (3)
  1. VISIPAQUE [Suspect]
     Indication: CORONARY ARTERY DISEASE
     Dosage: 140 ML, SINGLE DOSE, CORONARY
     Route: 022
     Dates: start: 20060706, end: 20060706
  2. METHYLPREDINSOLONE SODIUM SUCCINATE (SOLU-MEDROL) [Concomitant]
  3. BENADRYL [Concomitant]

REACTIONS (1)
  - ANAPHYLACTOID REACTION [None]
